FAERS Safety Report 14000644 (Version 3)
Quarter: 2017Q4

REPORT INFORMATION
  Report Type: Spontaneous
  Country: JP (occurrence: JP)
  Receive Date: 20170922
  Receipt Date: 20171009
  Transmission Date: 20180321
  Serious: Yes (Other)
  Sender: FDA-Public Use
  Company Number: JP-BAYER-2017-176837

PATIENT
  Age: 83 Year
  Sex: Male

DRUGS (2)
  1. ACETYLSALICYLIC ACID({=100 MG) [Suspect]
     Active Substance: ASPIRIN
     Indication: ANTICOAGULANT THERAPY
     Dosage: DAILY DOSE 100 MG
     Route: 048
  2. PRASUGREL. [Concomitant]
     Active Substance: PRASUGREL
     Indication: ANTICOAGULANT THERAPY
     Dosage: DAILY DOSE 3.75 MG
     Route: 048

REACTIONS (5)
  - Gallbladder perforation [None]
  - Cholecystitis acute [None]
  - Labelled drug-drug interaction medication error [None]
  - Haemobilia [None]
  - Contraindicated product administered [None]
